FAERS Safety Report 5534993-6 (Version None)
Quarter: 2007Q4

REPORT INFORMATION
  Report Type: 
  Country: None (occurrence: None)
  Receive Date: 20071203
  Receipt Date: 20071120
  Transmission Date: 20080405
  Serious: Yes (Other)
  Sender: FDA-Public Use
  Company Number: 2007SP022765

PATIENT
  Age: 28 Year
  Sex: Male

DRUGS (2)
  1. DR. SCHOLL'S ULTRA THIN CORN REMOVERS (40 PCT) [Suspect]
     Indication: DRUG USE FOR UNKNOWN INDICATION
     Dosage: TOP
     Route: 061
  2. VANCOMYCIN [Suspect]
     Indication: CELLULITIS

REACTIONS (7)
  - CELLULITIS [None]
  - OSTEOMYELITIS [None]
  - RED MAN SYNDROME [None]
  - STAPHYLOCOCCAL INFECTION [None]
  - TINEA PEDIS [None]
  - TOE AMPUTATION [None]
  - WOUND INFECTION [None]
